FAERS Safety Report 9490518 (Version 1)
Quarter: 2013Q3

REPORT INFORMATION
  Report Type: Spontaneous
  Country: US (occurrence: US)
  Receive Date: 20130830
  Receipt Date: 20130830
  Transmission Date: 20140515
  Serious: No
  Sender: FDA-Public Use
  Company Number: US-BAYER-2013-104377

PATIENT
  Sex: Male

DRUGS (1)
  1. BETASERON [Suspect]
     Dosage: 0.25 MG, QOD

REACTIONS (7)
  - Injection site pain [None]
  - Injection site erythema [None]
  - Injection site inflammation [None]
  - Fatigue [None]
  - Influenza like illness [None]
  - Headache [None]
  - Nausea [None]
